FAERS Safety Report 8598414-1 (Version None)
Quarter: 2012Q3

REPORT INFORMATION
  Report Type: 
  Country: None (occurrence: None)
  Receive Date: 20120816
  Receipt Date: 20120808
  Transmission Date: 20120928
  Serious: Yes (Hospitalization, Other)
  Sender: FDA-Public Use
  Company Number: US-PFIZER INC-2012062035

PATIENT
  Age: 51 Year
  Sex: Male

DRUGS (8)
  1. METFORMIN [Concomitant]
     Dosage: 500 MG, UNK
     Dates: start: 20100910
  2. DILANTIN [Suspect]
     Indication: CEREBROVASCULAR ACCIDENT
     Dosage: 100 MG, UNK
     Dates: start: 20100815
  3. RAMIPRIL [Concomitant]
     Dosage: 2.5 MG, UNK
     Dates: start: 20100910
  4. CIPROFLOXACIN [Concomitant]
     Dosage: 500 MG, UNK
     Dates: start: 20100921
  5. DILANTIN [Suspect]
     Dosage: 200 MG, 1X/DAY
     Route: 048
     Dates: start: 20100817
  6. DILANTIN [Suspect]
     Dosage: 200 MG, 2X/DAY
     Route: 048
  7. SIMVASTATIN [Concomitant]
     Dosage: 40 MG, UNK
     Dates: start: 20100910
  8. ASPIRIN [Concomitant]
     Dosage: 325 MG, UNK
     Dates: start: 20100910

REACTIONS (1)
  - STEVENS-JOHNSON SYNDROME [None]
